FAERS Safety Report 4641255-8 (Version None)
Quarter: 2005Q2

REPORT INFORMATION
  Report Type: 
  Country: None (occurrence: None)
  Receive Date: 20050421
  Receipt Date: 20050406
  Transmission Date: 20051028
  Serious: Yes (Death, Other)
  Sender: FDA-Public Use
  Company Number: JP-JNJFOC-20050401383

PATIENT
  Age: 67 Year
  Sex: Male

DRUGS (5)
  1. TAVANIC [Suspect]
     Route: 049
  2. CORDAREX [Concomitant]
  3. DELIX [Concomitant]
  4. SPIROLACTON [Concomitant]
  5. CORTISONE ACETATE [Concomitant]

REACTIONS (2)
  - BLOOD PRESSURE DECREASED [None]
  - SUDDEN DEATH [None]
